FAERS Safety Report 11404455 (Version 1)
Quarter: 2015Q3

REPORT INFORMATION
  Report Type: Spontaneous
  Country: US (occurrence: US)
  Receive Date: 20150821
  Receipt Date: 20150821
  Transmission Date: 20151125
  Serious: Yes (Hospitalization, Other)
  Sender: FDA-Public Use
  Company Number: US-PFIZER INC-2015274870

PATIENT
  Age: 55 Year
  Sex: Female
  Weight: 93 kg

DRUGS (12)
  1. SOMA [Concomitant]
     Active Substance: CARISOPRODOL
     Dosage: 350 MG, 3X/DAY (1 TABLET BY MOUTH TID AS NEEDED )
     Route: 048
  2. FUROSEMIDE. [Concomitant]
     Active Substance: FUROSEMIDE
     Dosage: 40MG, 2X/DAY (1 TABLET BY MOUTH BID)
     Route: 048
  3. REVATIO [Suspect]
     Active Substance: SILDENAFIL CITRATE
     Indication: PULMONARY HYPERTENSION
     Dosage: 20 MG, 3X/DAY(1 TABLET BY MOUTH TID)
     Route: 048
  4. EFFEXOR XR [Suspect]
     Active Substance: VENLAFAXINE HYDROCHLORIDE
     Dosage: 37.5 MG, 2X/DAY (1 TABLET BY MOUTH BID)
     Route: 048
  5. REGLAN [Concomitant]
     Active Substance: METOCLOPRAMIDE HYDROCHLORIDE
     Dosage: 5 MG, DAILY (1 TABLET BY MOUTH DAILY)
     Route: 048
  6. COUMADIN [Concomitant]
     Active Substance: WARFARIN SODIUM
     Indication: PULMONARY HYPERTENSION
     Dosage: 6 MG, 1X/DAY
     Route: 048
  7. PHENAZOPYRIDINE. [Concomitant]
     Active Substance: PHENAZOPYRIDINE
     Dosage: 100 MG, UNK (1 TABLET BY MOUTH Q8H)
     Route: 048
  8. ALPRAZOLAM. [Concomitant]
     Active Substance: ALPRAZOLAM
     Dosage: 1 MG, AS NEEDED (1 TABLET BY MOUTH TID (AS NEEDED)
     Route: 048
  9. FLEXERIL [Concomitant]
     Active Substance: CYCLOBENZAPRINE HYDROCHLORIDE
     Dosage: 10 MG, 2X/DAY 1 TABLET BY MOUTH BID (AS NEEDED)
     Route: 048
  10. OMEPRAZOLE. [Concomitant]
     Active Substance: OMEPRAZOLE
     Dosage: 20 MG, DAILY (1 CAPSULE BY MOUTH DAILY)
     Route: 048
  11. HYDROCODONE/ACETAMINOPHEN [Concomitant]
     Active Substance: ACETAMINOPHEN\HYDROCODONE
     Dosage: UNK, AS NEEDED (DOSE: 10-500MG) TABLET BY MOUTH Q6H (AS NEEDED))
     Route: 048
  12. SPIRONOLACTONE. [Concomitant]
     Active Substance: SPIRONOLACTONE
     Dosage: 50 MG, 2X/DAY (1 TABLET BY MOUTH BID)
     Route: 048

REACTIONS (3)
  - Dyspnoea [Unknown]
  - Hypersomnia [Unknown]
  - Syncope [Unknown]
